FAERS Safety Report 23654412 (Version 2)
Quarter: 2024Q2

REPORT INFORMATION
  Report Type: Spontaneous
  Country: GB (occurrence: GB)
  Receive Date: 20240320
  Receipt Date: 20240430
  Transmission Date: 20240716
  Serious: Yes (Death, Life-Threatening, Hospitalization, Other)
  Sender: FDA-Public Use
  Company Number: GB-BRISTOL-MYERS SQUIBB COMPANY-2024-044474

PATIENT
  Age: 23 Year
  Sex: Female

DRUGS (30)
  1. NIVOLUMAB [Suspect]
     Active Substance: NIVOLUMAB
     Indication: Primary mediastinal large B-cell lymphoma
     Route: 042
     Dates: start: 20240301
  2. BRENTUXIMAB [Suspect]
     Active Substance: BRENTUXIMAB
     Indication: Primary mediastinal large B-cell lymphoma
     Route: 042
     Dates: start: 20240229
  3. GANCICLOVIR [Concomitant]
     Active Substance: GANCICLOVIR
     Indication: Antiviral prophylaxis
     Route: 042
  4. MEROPENEM [Concomitant]
     Active Substance: MEROPENEM
     Indication: Sepsis
     Route: 042
     Dates: start: 20240225
  5. VANCOMYCIN [Concomitant]
     Active Substance: VANCOMYCIN
     Indication: Sepsis
     Route: 042
     Dates: start: 20240205
  6. HYDROCORTISONE [Concomitant]
     Active Substance: HYDROCORTISONE
     Indication: Stress
     Route: 042
     Dates: start: 20240303
  7. RASBURICASE [Concomitant]
     Active Substance: RASBURICASE
     Indication: Prophylaxis
     Route: 042
     Dates: start: 20240229
  8. FENTANYL [Concomitant]
     Active Substance: FENTANYL\FENTANYL CITRATE
     Indication: Analgesic therapy
     Route: 042
     Dates: start: 20240302
  9. MORPHINE SULFATE [Concomitant]
     Active Substance: MORPHINE SULFATE
     Indication: Analgesic therapy
     Route: 042
     Dates: start: 20240226
  10. ACYCLOVIR [Concomitant]
     Active Substance: ACYCLOVIR
     Indication: Prophylaxis
     Dosage: NG
     Dates: start: 20240225
  11. ALENDRONIC ACID [Concomitant]
     Active Substance: ALENDRONIC ACID
     Indication: Prophylaxis
     Dosage: PO/NG
     Dates: start: 20240302
  12. ALLOPURINOL [Concomitant]
     Active Substance: ALLOPURINOL
     Indication: Depressed mood
     Dates: start: 20240225
  13. ALLOPURINOL [Concomitant]
     Active Substance: ALLOPURINOL
     Indication: Pain
  14. AMPHOTERICIN B [Concomitant]
     Active Substance: AMPHOTERICIN B
     Indication: Fungal infection
     Route: 042
     Dates: start: 20240313
  15. APIXABAN [Concomitant]
     Active Substance: APIXABAN
     Indication: Thrombosis prophylaxis
     Dosage: 5-10MG BD
     Route: 048
     Dates: start: 20240225
  16. COTRIMOXAZOLE [Concomitant]
     Active Substance: SULFAMETHOXAZOLE\TRIMETHOPRIM
     Indication: Infection prophylaxis
     Dosage: MON/THURS?PO/NG
     Route: 042
     Dates: start: 20240226
  17. DOMPERIDONE [Concomitant]
     Active Substance: DOMPERIDONE
     Indication: Vomiting
     Dosage: PO/NG
     Route: 042
     Dates: start: 20240225
  18. FILGRASTIM [Concomitant]
     Active Substance: FILGRASTIM
     Indication: White blood cell count abnormal
     Route: 058
     Dates: start: 20240229
  19. FLUCONAZOLE [Concomitant]
     Active Substance: FLUCONAZOLE
     Indication: Oral candidiasis
     Dosage: PO/NG
     Route: 042
     Dates: start: 20240301
  20. GABAPENTIN [Concomitant]
     Active Substance: GABAPENTIN
     Indication: Pain
     Dosage: PO/NG
     Route: 042
     Dates: start: 20240225
  21. GENTAMICIN [Concomitant]
     Active Substance: GENTAMICIN
     Indication: Infection
     Route: 042
     Dates: start: 20240303
  22. BUTYLSCOPOLAMINE BROMIDE [Concomitant]
     Active Substance: BUTYLSCOPOLAMINE BROMIDE
     Indication: Abdominal pain
     Route: 058
     Dates: start: 20240229
  23. LANSOPRAZOLE [Concomitant]
     Active Substance: LANSOPRAZOLE
     Indication: Prophylaxis
     Route: 048
     Dates: start: 20240226
  24. LEVOFLOXACIN [Concomitant]
     Active Substance: LEVOFLOXACIN
     Indication: Infection
     Route: 042
     Dates: start: 20240308
  25. NORETHINDRONE [Concomitant]
     Active Substance: NORETHINDRONE
     Indication: Menopause
     Dosage: PO/NG
     Route: 042
     Dates: start: 20240225
  26. ONDANSETRON HYDROCHLORIDE [Concomitant]
     Active Substance: ONDANSETRON HYDROCHLORIDE
     Indication: Vomiting
     Route: 042
     Dates: start: 20240226
  27. OXYCODONE [Concomitant]
     Active Substance: OXYCODONE\OXYCODONE HYDROCHLORIDE
     Indication: Pain
     Dosage: 10-20MG PRN?SC/PO
     Route: 048
     Dates: start: 20240226
  28. OXYCODONE [Concomitant]
     Active Substance: OXYCODONE\OXYCODONE HYDROCHLORIDE
     Route: 048
     Dates: start: 20240226
  29. ACETAMINOPHEN [Concomitant]
     Active Substance: ACETAMINOPHEN
     Indication: Pain
     Route: 048
     Dates: start: 20240225
  30. ACETAMINOPHEN [Concomitant]
     Active Substance: ACETAMINOPHEN
     Indication: Pyrexia

REACTIONS (3)
  - Malignant neoplasm progression [Fatal]
  - Off label use [Unknown]
  - Thrombosis [Unknown]
